FAERS Safety Report 9812772 (Version 1)
Quarter: 2014Q1

REPORT INFORMATION
  Report Type: Spontaneous
  Country: US (occurrence: None)
  Receive Date: 20140109
  Receipt Date: 20140109
  Transmission Date: 20141002
  Serious: Yes (Other)
  Sender: FDA-Public Use
  Company Number: None

PATIENT
  Age: 33 Year
  Sex: Female
  Weight: 56.7 kg

DRUGS (2)
  1. CIPROFLOXACIN [Suspect]
     Indication: URINARY TRACT INFECTION
     Route: 048
     Dates: start: 20131217, end: 20131223
  2. MULTI VITAMIN FOR WOMEN [Concomitant]

REACTIONS (7)
  - Fatigue [None]
  - Malaise [None]
  - Hypersensitivity [None]
  - Urticaria [None]
  - Serum sickness [None]
  - Rash [None]
  - Local swelling [None]
